FAERS Safety Report 6355386-8 (Version None)
Quarter: 2009Q3

REPORT INFORMATION
  Report Type: 
  Country: None (occurrence: None)
  Receive Date: 20090914
  Receipt Date: 20090908
  Transmission Date: 20100115
  Serious: Yes (Other)
  Sender: FDA-Public Use
  Company Number: US-GENENTECH-290109

PATIENT
  Sex: Female

DRUGS (4)
  1. CATHFLO ACTIVASE [Suspect]
     Indication: INTRAVENOUS CATHETER MANAGEMENT
     Dosage: 4 MG, SINGLE
     Route: 050
  2. ANTIBIOTICS (NOT SPECIFIED) [Concomitant]
     Indication: DRUG USE FOR UNKNOWN INDICATION
     Route: 042
  3. TPN [Concomitant]
     Indication: DRUG USE FOR UNKNOWN INDICATION
     Route: 042
  4. SODIUM CHLORIDE [Concomitant]
     Indication: INTRAVENOUS CATHETER MANAGEMENT
     Route: 050

REACTIONS (2)
  - ACCIDENTAL EXPOSURE [None]
  - PULMONARY EMBOLISM [None]
